FAERS Safety Report 19935985 (Version 1)
Quarter: 2021Q4

REPORT INFORMATION
  Report Type: Spontaneous
  Country: BE (occurrence: BE)
  Receive Date: 20211008
  Receipt Date: 20211008
  Transmission Date: 20220303
  Serious: Yes (Life-Threatening, Other)
  Sender: FDA-Public Use
  Company Number: None

PATIENT
  Age: 75 Year
  Sex: Female
  Weight: 70.8 kg

DRUGS (9)
  1. TOPAMAX [Suspect]
     Active Substance: TOPIRAMATE
     Indication: Product used for unknown indication
     Route: 065
     Dates: end: 20210615
  2. TOPIRAMATE [Concomitant]
     Active Substance: TOPIRAMATE
  3. CRESTOR [Concomitant]
     Active Substance: ROSUVASTATIN CALCIUM
  4. PROPRANOLOL RETARD EG [Concomitant]
     Dosage: PROPRANOLOL RETARD EG 160 MG
  5. NOCDURNA [Concomitant]
     Active Substance: DESMOPRESSIN ACETATE
     Dosage: NOCDURNA 25 MICROGRAMMES
  6. CYMBALTA [Concomitant]
     Active Substance: DULOXETINE HYDROCHLORIDE
     Dosage: CYMBALTA 60 MG
  7. PANTOMED [Concomitant]
     Dosage: 20 MG
  8. LERCANIDIPINE HYDROCHLORIDE [Concomitant]
     Active Substance: LERCANIDIPINE HYDROCHLORIDE
     Dosage: 10 MG
  9. FERROUS SULFATE [Concomitant]
     Active Substance: FERROUS SULFATE

REACTIONS (3)
  - Dysphagia [Recovering/Resolving]
  - Macroglossia [Recovering/Resolving]
  - Dysarthria [Recovering/Resolving]

NARRATIVE: CASE EVENT DATE: 20210514
